FAERS Safety Report 22589744 (Version 1)
Quarter: 2023Q2

REPORT INFORMATION
  Report Type: Spontaneous
  Country: US (occurrence: US)
  Receive Date: 20230612
  Receipt Date: 20230612
  Transmission Date: 20230721
  Serious: No
  Sender: FDA-Public Use
  Company Number: US-SA-SAC20230607001394

PATIENT
  Age: 35 Year
  Sex: Male

DRUGS (2)
  1. DUPIXENT [Suspect]
     Active Substance: DUPILUMAB
     Indication: Hidradenitis
     Dosage: 300 MG, QOW
     Route: 058
     Dates: start: 201804
  2. DUPIXENT [Suspect]
     Active Substance: DUPILUMAB
     Indication: Dermatitis allergic

REACTIONS (4)
  - Hidradenitis [Unknown]
  - Condition aggravated [Unknown]
  - Eczema [Unknown]
  - Product use in unapproved indication [Unknown]

NARRATIVE: CASE EVENT DATE: 20180401
